FAERS Safety Report 4502771-2 (Version None)
Quarter: 2004Q4

REPORT INFORMATION
  Report Type: 
  Country: None (occurrence: None)
  Receive Date: 20041116
  Receipt Date: 20041109
  Transmission Date: 20050328
  Serious: Yes (Life-Threatening, Disabling)
  Sender: FDA-Public Use
  Company Number: US-MERCK-0411USA01685

PATIENT
  Age: 64 Year
  Sex: Female

DRUGS (6)
  1. VIOXX [Suspect]
     Indication: ARTHRITIS
     Route: 048
     Dates: start: 20010101, end: 20040930
  2. LIPITOR [Concomitant]
     Route: 048
  3. PRINIVIL [Concomitant]
     Route: 048
  4. TOPROL-XL [Concomitant]
     Route: 048
  5. ACTOS [Concomitant]
     Route: 065
  6. [THERAPY UNSPECIFIED] [Concomitant]
     Route: 065

REACTIONS (3)
  - CARDIAC FLUTTER [None]
  - CORONARY ARTERY OCCLUSION [None]
  - DYSPNOEA [None]
